FAERS Safety Report 14769134 (Version 3)
Quarter: 2018Q2

REPORT INFORMATION
  Report Type: Spontaneous
  Country: JP (occurrence: JP)
  Receive Date: 20180417
  Receipt Date: 20180621
  Transmission Date: 20180711
  Serious: Yes (Hospitalization, Other)
  Sender: FDA-Public Use
  Company Number: JP-REGENERON PHARMACEUTICALS, INC.-2018-16978

PATIENT

DRUGS (20)
  1. EYLEA [Suspect]
     Active Substance: AFLIBERCEPT
     Dosage: 0.05 ML, LEFT EYE, ONCE
     Route: 031
     Dates: start: 20180226, end: 20180226
  2. EYLEA [Suspect]
     Active Substance: AFLIBERCEPT
     Dosage: 0.05 ML, LEFT EYE, ONCE
     Route: 031
     Dates: start: 20171218, end: 20171218
  3. FLUVASTATIN [Concomitant]
     Active Substance: FLUVASTATIN SODIUM
     Indication: PRODUCT USED FOR UNKNOWN INDICATION
     Route: 048
  4. XYLOCAINE #1 [Concomitant]
     Active Substance: LIDOCAINE
     Indication: ANAESTHESIA PROCEDURE
     Dosage: DAILY DOSE .8 ?L
     Route: 047
     Dates: end: 20180206
  5. VANCOMYCIN [Concomitant]
     Active Substance: VANCOMYCIN
     Indication: PRODUCT USED FOR UNKNOWN INDICATION
     Dosage: UNK
     Dates: start: 20180227
  6. SODIUM CHLORIDE. [Concomitant]
     Active Substance: SODIUM CHLORIDE
     Indication: PRODUCT USED FOR UNKNOWN INDICATION
     Dosage: UNK
     Dates: start: 20180227
  7. EYLEA [Suspect]
     Active Substance: AFLIBERCEPT
     Dosage: 0.05 ML, LEFT EYE, ONCE
     Route: 031
     Dates: start: 20170626, end: 20170626
  8. EYLEA [Suspect]
     Active Substance: AFLIBERCEPT
     Dosage: 0.05 ML, RIGHT EYE, ONCE
     Route: 031
     Dates: start: 20180122, end: 20180122
  9. NATRIX [Concomitant]
     Active Substance: INDAPAMIDE
     Indication: PRODUCT USED FOR UNKNOWN INDICATION
     Dosage: UNK
     Route: 048
  10. DOXAZOSIN [Concomitant]
     Active Substance: DOXAZOSIN\DOXAZOSIN MESYLATE
     Indication: PRODUCT USED FOR UNKNOWN INDICATION
  11. RABEPRAZOLE SODIUM. [Concomitant]
     Active Substance: RABEPRAZOLE SODIUM
     Indication: PRODUCT USED FOR UNKNOWN INDICATION
     Route: 048
  12. EYLEA [Suspect]
     Active Substance: AFLIBERCEPT
     Dosage: 0.05 ML, LEFT EYE, ONCE
     Route: 031
     Dates: start: 20170925, end: 20170925
  13. LEVOFLOXACIN. [Concomitant]
     Active Substance: LEVOFLOXACIN
     Indication: PRODUCT USED FOR UNKNOWN INDICATION
     Dosage: UNK UNK, QID
     Dates: start: 20180228
  14. LINOLOSAL [Concomitant]
     Active Substance: BETAMETHASONE SODIUM PHOSPHATE
     Indication: PRODUCT USED FOR UNKNOWN INDICATION
     Dosage: UNK UNK, QID
     Dates: start: 20180228
  15. IODINE. [Concomitant]
     Active Substance: IODINE
     Indication: INFECTION PROPHYLAXIS
     Dosage: LEFT EYE
     Route: 047
     Dates: end: 20180226
  16. SANDOL P [Concomitant]
     Indication: MYDRIASIS
     Dosage: LEFT EYE
     Route: 047
     Dates: end: 20180226
  17. CEFTAZIDIME. [Concomitant]
     Active Substance: CEFTAZIDIME
     Indication: PRODUCT USED FOR UNKNOWN INDICATION
     Dosage: UNK
     Dates: start: 20180227
  18. TELMISARTAN. [Concomitant]
     Active Substance: TELMISARTAN
     Indication: PRODUCT USED FOR UNKNOWN INDICATION
     Route: 048
  19. EYLEA [Suspect]
     Active Substance: AFLIBERCEPT
     Indication: AGE-RELATED MACULAR DEGENERATION
     Dosage: 0.05 ML, LEFT EYE, ONCE
     Route: 031
     Dates: start: 20170526, end: 20170526
  20. VEGAMOX [Concomitant]
     Active Substance: MOXIFLOXACIN HYDROCHLORIDE
     Indication: INFECTION PROPHYLAXIS
     Dosage: LEFT EYE, QID
     Route: 047
     Dates: start: 20180220, end: 20180227

REACTIONS (7)
  - Non-infectious endophthalmitis [Recovering/Resolving]
  - Macular detachment [Not Recovered/Not Resolved]
  - Detachment of retinal pigment epithelium [Not Recovered/Not Resolved]
  - Cardiomegaly [Unknown]
  - Vitreous haemorrhage [Recovered/Resolved]
  - Hyphaema [Recovered/Resolved]
  - Injection site pain [Unknown]

NARRATIVE: CASE EVENT DATE: 20180219
